FAERS Safety Report 5787463-4 (Version None)
Quarter: 2008Q2

REPORT INFORMATION
  Report Type: 
  Country: None (occurrence: None)
  Receive Date: 20080625
  Receipt Date: 20080610
  Transmission Date: 20081010
  Serious: Yes (Hospitalization)
  Sender: FDA-Public Use
  Company Number: IL-GENENTECH-262993

PATIENT
  Age: 60 Year
  Sex: Female

DRUGS (4)
  1. BEVACIZUMAB [Suspect]
     Indication: PANCREATIC CARCINOMA METASTATIC
     Dosage: 5 MG/KG, Q2W
     Route: 042
     Dates: start: 20060530
  2. ERLOTINIB [Suspect]
     Indication: PANCREATIC CARCINOMA METASTATIC
     Dosage: 100 MG, QD
     Route: 048
     Dates: start: 20060530
  3. GEMCITABINE [Suspect]
     Indication: PANCREATIC CARCINOMA METASTATIC
     Dosage: 1530 MG, 1/WEEK
     Route: 042
     Dates: start: 20060530
  4. AMOXICILLIN AND CLAVULANATE POTASSIUM [Concomitant]
     Indication: PERIANAL ABSCESS
     Dosage: 875 MG, BID

REACTIONS (1)
  - MALIGNANT HYPERTENSION [None]
